FAERS Safety Report 5521838-3 (Version None)
Quarter: 2007Q4

REPORT INFORMATION
  Report Type: 
  Country: None (occurrence: None)
  Receive Date: 20071120
  Receipt Date: 20071109
  Transmission Date: 20080405
  Serious: Yes (Other)
  Sender: FDA-Public Use
  Company Number: US-ROCHE-508377

PATIENT
  Age: 80 Year
  Sex: Female

DRUGS (2)
  1. BONIVA [Suspect]
     Indication: OSTEOPOROSIS
     Route: 048
  2. BONIVA [Suspect]
     Route: 042

REACTIONS (4)
  - ACANTHOSIS [None]
  - BONE DISORDER [None]
  - HYPERKERATOSIS [None]
  - TOOTH DISORDER [None]
